FAERS Safety Report 18555034 (Version 1)
Quarter: 2020Q4

REPORT INFORMATION
  Report Type: Report from Study
  Country: US (occurrence: US)
  Receive Date: 20201127
  Receipt Date: 20201127
  Transmission Date: 20210114
  Serious: No
  Sender: FDA-Public Use
  Company Number: US-IPSEN BIOPHARMACEUTICALS, INC.-2020-23125

PATIENT
  Sex: Male

DRUGS (1)
  1. DYSPORT [Suspect]
     Active Substance: ABOBOTULINUMTOXINA
     Indication: HEMIPLEGIA
     Dosage: 1000 IU (UPPER AND LOWER EXTREMITIES)
     Route: 065

REACTIONS (2)
  - Condition aggravated [Unknown]
  - Product dose omission issue [Unknown]
